FAERS Safety Report 10514980 (Version 3)
Quarter: 2014Q4

REPORT INFORMATION
  Report Type: Spontaneous
  Country: JP (occurrence: JP)
  Receive Date: 20141013
  Receipt Date: 20141120
  Transmission Date: 20150528
  Serious: Yes (Hospitalization, Other)
  Sender: FDA-Public Use
  Company Number: PHJP2014JP001210

PATIENT
  Age: 33 Year
  Sex: Male

DRUGS (2)
  1. TEGRETOL [Suspect]
     Active Substance: CARBAMAZEPINE
     Indication: TEMPORAL LOBE EPILEPSY
     Dosage: 100 MG, BID
     Route: 048
     Dates: start: 20070213, end: 20070227
  2. TEGRETOL [Suspect]
     Active Substance: CARBAMAZEPINE
     Dosage: 200 MG, BID
     Route: 048
     Dates: start: 20070228, end: 201206

REACTIONS (7)
  - Hypoxia [Recovered/Resolved]
  - Asterixis [Recovered/Resolved]
  - Epilepsy [Unknown]
  - Pulmonary alveolar haemorrhage [Recovered/Resolved]
  - Haemoptysis [Recovered/Resolved]
  - Cough [Recovered/Resolved]
  - Dyspnoea [Recovered/Resolved]

NARRATIVE: CASE EVENT DATE: 20120618
